FAERS Safety Report 4698795-5 (Version None)
Quarter: 2005Q2

REPORT INFORMATION
  Report Type: 
  Country: None (occurrence: None)
  Receive Date: 20050622
  Receipt Date: 20050607
  Transmission Date: 20051028
  Serious: Yes (Death)
  Sender: FDA-Public Use
  Company Number: L05-USA-02134-01

PATIENT
  Age: 40 Year
  Sex: Male

DRUGS (2)
  1. CITALOPRAM [Suspect]
  2. OLANZAPINE [Suspect]

REACTIONS (2)
  - ACCIDENTAL DEATH [None]
  - DRUG TOXICITY [None]
